FAERS Safety Report 8264802-6 (Version None)
Quarter: 2012Q2

REPORT INFORMATION
  Report Type: 
  Country: None (occurrence: None)
  Receive Date: 20120406
  Receipt Date: 20120322
  Transmission Date: 20120825
  Serious: Yes (Death, Hospitalization, Other)
  Sender: FDA-Public Use
  Company Number: US-ASTELLAS-2012US000638

PATIENT
  Sex: Male

DRUGS (9)
  1. ALBUTEROL [Concomitant]
     Indication: WHEEZING
     Dosage: 90 UG, Q4-6H PRN
     Route: 055
  2. TARCEVA [Suspect]
     Indication: LUNG NEOPLASM MALIGNANT
     Dosage: 150 MG, UID/QD
     Route: 048
     Dates: start: 20110404, end: 20110511
  3. ADVAIR DISKUS 100/50 [Concomitant]
     Indication: PRODUCT USED FOR UNKNOWN INDICATION
     Dosage: 250/50 MCG, 1 PUFF BID
     Route: 055
  4. LOVENOX [Concomitant]
     Indication: PRODUCT USED FOR UNKNOWN INDICATION
     Dosage: UNK
     Route: 065
  5. FENTANYL CITRATE [Concomitant]
     Indication: PRODUCT USED FOR UNKNOWN INDICATION
     Dosage: UNK
     Route: 065
  6. FOLIC ACID [Concomitant]
     Indication: PRODUCT USED FOR UNKNOWN INDICATION
     Dosage: UNK
     Route: 065
  7. ALBUTEROL [Concomitant]
     Indication: DYSPNOEA
     Dosage: 2.5 MG/3 ML Q6H PRN
  8. PERCOCET [Concomitant]
     Indication: PAIN
     Dosage: 10/325 MG, 1-2 TABLETS Q6H PRN
  9. CYCLOBENZAPRINE [Concomitant]
     Indication: MUSCLE SPASMS
     Dosage: UNK
     Route: 065

REACTIONS (13)
  - METASTASES TO CENTRAL NERVOUS SYSTEM [None]
  - UPPER GASTROINTESTINAL HAEMORRHAGE [None]
  - ECCHYMOSIS [None]
  - ANAEMIA [None]
  - PNEUMONIA [None]
  - DYSPHAGIA [None]
  - DEATH [None]
  - PULMONARY EMBOLISM [None]
  - HAEMATEMESIS [None]
  - FALL [None]
  - DECUBITUS ULCER [None]
  - HALLUCINATION [None]
  - APHASIA [None]
